FAERS Safety Report 5570608-9 (Version None)
Quarter: 2007Q4

REPORT INFORMATION
  Report Type: 
  Country: None (occurrence: None)
  Receive Date: 20071221
  Receipt Date: 20071210
  Transmission Date: 20080405
  Serious: Yes (Death)
  Sender: FDA-Public Use
  Company Number: JP-JNJFOC-20071202051

PATIENT
  Sex: Female

DRUGS (7)
  1. DORIBAX [Suspect]
     Route: 041
  2. DORIBAX [Suspect]
     Indication: PERITONITIS
     Route: 041
  3. NEUART [Concomitant]
     Route: 041
  4. VENOGLOBULIN [Concomitant]
     Indication: PERITONITIS
     Route: 041
  5. ELASPOL [Concomitant]
     Route: 041
  6. MEROPEN [Concomitant]
     Indication: PERITONITIS
     Route: 041
  7. FUNGUARD [Concomitant]
     Indication: PERITONITIS
     Route: 041

REACTIONS (3)
  - HEPATIC FUNCTION ABNORMAL [None]
  - PERITONITIS [None]
  - RENAL IMPAIRMENT [None]
